FAERS Safety Report 25640561 (Version 1)
Quarter: 2025Q3

REPORT INFORMATION
  Report Type: Spontaneous
  Country: US (occurrence: US)
  Receive Date: 20250804
  Receipt Date: 20250804
  Transmission Date: 20251020
  Serious: No
  Sender: SCPHARMACEUTICALS
  Company Number: US-SCPHARMACEUTICALS-2025-SCPH-US000305

PATIENT

DRUGS (1)
  1. FUROSCIX [Suspect]
     Active Substance: FUROSEMIDE
     Indication: Cardiac failure
     Route: 058

REACTIONS (3)
  - Drug ineffective [Not Recovered/Not Resolved]
  - Urine output decreased [Not Recovered/Not Resolved]
  - Condition aggravated [Not Recovered/Not Resolved]
